FAERS Safety Report 4653791-9 (Version None)
Quarter: 2005Q2

REPORT INFORMATION
  Report Type: 
  Country: None (occurrence: None)
  Receive Date: 20050404
  Receipt Date: 20041115
  Transmission Date: 20051028
  Serious: No
  Sender: FDA-Public Use
  Company Number: US_0411108329

PATIENT
  Age: 54 Year
  Sex: Female

DRUGS (1)
  1. CYMBALTA (DULOEXTINE HYDROCHLORIDE) [Suspect]
     Indication: DEPRESSION
     Dosage: 60 MG DAY

REACTIONS (1)
  - TIC [None]
